FAERS Safety Report 10648720 (Version 1)
Quarter: 2014Q4

REPORT INFORMATION
  Report Type: Spontaneous
  Country: FI (occurrence: FI)
  Receive Date: 20141212
  Receipt Date: 20141212
  Transmission Date: 20150529
  Serious: Yes (Disabling)
  Sender: FDA-Public Use
  Company Number: FI-TEVA-526978ISR

PATIENT
  Age: 53 Year
  Sex: Female

DRUGS (3)
  1. METOHEXAL 47,5 MG [Concomitant]
     Indication: HYPERTENSION
     Dosage: 47.5 MILLIGRAM DAILY;
     Route: 048
     Dates: start: 20080401
  2. LOSARTAN [Concomitant]
     Active Substance: LOSARTAN
     Indication: HYPERTENSION
     Dosage: 50 MILLIGRAM DAILY;
     Route: 048
     Dates: start: 20100101
  3. ESTRENA 1MG/G [Suspect]
     Active Substance: ESTRADIOL
     Indication: MENOPAUSAL SYMPTOMS
     Dosage: 1 MILLIGRAM DAILY; 2-3 DOSES ONCE A DAY. EACH DOSE RELEASES 0.5MG
     Route: 061
     Dates: start: 20140911, end: 20141009

REACTIONS (5)
  - Nodule [Not Recovered/Not Resolved]
  - Breast pain [Recovering/Resolving]
  - Pruritus [Recovering/Resolving]
  - Pigmentation disorder [Not Recovered/Not Resolved]
  - Blister [Not Recovered/Not Resolved]

NARRATIVE: CASE EVENT DATE: 20140915
